FAERS Safety Report 5445599-1 (Version None)
Quarter: 2007Q3

REPORT INFORMATION
  Report Type: 
  Country: None (occurrence: None)
  Receive Date: 20070906
  Receipt Date: 20070828
  Transmission Date: 20080115
  Serious: Yes (Hospitalization)
  Sender: FDA-Public Use
  Company Number: US-ABBOTT-07P-163-0415344-00

PATIENT
  Age: 62 Year
  Sex: Male

DRUGS (11)
  1. TERAZOSIN HCL [Interacting]
     Indication: DRUG USE FOR UNKNOWN INDICATION
  2. VERAPAMIL [Suspect]
     Indication: DRUG USE FOR UNKNOWN INDICATION
  3. ATENOLOL [Interacting]
     Indication: DRUG USE FOR UNKNOWN INDICATION
  4. CLONIDINE [Interacting]
     Indication: DRUG USE FOR UNKNOWN INDICATION
     Route: 062
  5. IRBESARTAN [Interacting]
     Indication: DRUG USE FOR UNKNOWN INDICATION
  6. FUROSEMIDE [Interacting]
     Indication: DRUG USE FOR UNKNOWN INDICATION
  7. METOLAZONE [Interacting]
     Indication: DRUG USE FOR UNKNOWN INDICATION
  8. INSULIN [Interacting]
     Indication: DRUG USE FOR UNKNOWN INDICATION
     Dosage: NOT REPORTED
  9. NAPROXEN [Interacting]
     Indication: DRUG USE FOR UNKNOWN INDICATION
  10. POTASSIUM CHLORIDE [Interacting]
     Indication: DRUG USE FOR UNKNOWN INDICATION
  11. 4 OTHER MEDICATIONS [Concomitant]
     Indication: DRUG USE FOR UNKNOWN INDICATION
     Dosage: NOT REPORTED

REACTIONS (3)
  - DRUG INTERACTION [None]
  - RENAL FAILURE [None]
  - SINUS BRADYCARDIA [None]
